FAERS Safety Report 12790722 (Version 1)
Quarter: 2016Q3

REPORT INFORMATION
  Report Type: Spontaneous
  Country: DE (occurrence: DE)
  Receive Date: 20160929
  Receipt Date: 20160929
  Transmission Date: 20161109
  Serious: Yes (Other)
  Sender: FDA-Public Use
  Company Number: DE-AMGEN-DEUSP2016086434

PATIENT
  Age: 71 Year
  Sex: Female
  Weight: 55 kg

DRUGS (4)
  1. PROLIA [Suspect]
     Active Substance: DENOSUMAB
     Indication: OSTEOPOROSIS
     Dosage: 60 MG, UNK
     Route: 065
     Dates: start: 20160518
  2. DELIX PLUS [Concomitant]
     Active Substance: HYDROCHLOROTHIAZIDE\RAMIPRIL
     Dosage: 5 MG, UNK
  3. ASPIRIN. [Concomitant]
     Active Substance: ASPIRIN
  4. AMLODIPIN [Concomitant]
     Active Substance: AMLODIPINE BESYLATE
     Dosage: 5 MG, UNK

REACTIONS (21)
  - Joint stiffness [Unknown]
  - Feeling abnormal [Unknown]
  - Anaemia [Unknown]
  - Myalgia [Not Recovered/Not Resolved]
  - Dermatitis [Unknown]
  - Oedema peripheral [Not Recovered/Not Resolved]
  - Retinitis [Unknown]
  - Inflammation [Unknown]
  - Ill-defined disorder [Unknown]
  - Quality of life decreased [Unknown]
  - Arthralgia [Not Recovered/Not Resolved]
  - Sciatica [Not Recovered/Not Resolved]
  - Speech disorder [Unknown]
  - Pain [Unknown]
  - Iritis [Not Recovered/Not Resolved]
  - Fatigue [Unknown]
  - Bone pain [Not Recovered/Not Resolved]
  - Cataract [Not Recovered/Not Resolved]
  - Choroiditis [Not Recovered/Not Resolved]
  - Mobility decreased [Unknown]
  - Hypophagia [Unknown]

NARRATIVE: CASE EVENT DATE: 2016
